FAERS Safety Report 8008217-4 (Version None)
Quarter: 2011Q4

REPORT INFORMATION
  Report Type: 
  Country: None (occurrence: None)
  Receive Date: 20111227
  Receipt Date: 20111221
  Transmission Date: 20120403
  Serious: Yes (Other)
  Sender: FDA-Public Use
  Company Number: JP-JNJFOC-20111201118

PATIENT
  Sex: Male
  Weight: 72 kg

DRUGS (21)
  1. OLMESARTAN MEDOXOMIL [Concomitant]
     Route: 048
  2. STELARA [Suspect]
     Route: 058
     Dates: start: 20110520, end: 20110520
  3. STELARA [Suspect]
     Route: 058
     Dates: start: 20110822, end: 20110822
  4. OLOPATADINE HCL [Concomitant]
     Indication: PSORIASIS
     Route: 048
     Dates: end: 20110821
  5. CORTRIL [Concomitant]
     Route: 048
  6. STELARA [Suspect]
     Route: 058
     Dates: start: 20111118, end: 20111118
  7. TIGASON [Concomitant]
     Indication: PSORIASIS
     Route: 048
     Dates: end: 20110729
  8. BONALFA [Concomitant]
     Indication: PSORIASIS
     Route: 061
  9. TOPSYM [Concomitant]
     Indication: PSORIASIS
     Route: 061
  10. SAHNE [Concomitant]
     Indication: PSORIASIS
     Route: 061
  11. LEVOTHYROXINE SODIUM [Concomitant]
     Route: 048
  12. STELARA [Suspect]
     Indication: PSORIASIS
     Route: 058
     Dates: start: 20110420, end: 20110420
  13. ISONIAZID [Suspect]
     Route: 048
     Dates: start: 20110330, end: 20110730
  14. METHADERM [Concomitant]
     Indication: PSORIASIS
     Route: 061
  15. LIDOMEX [Concomitant]
     Indication: PSORIASIS
     Route: 061
  16. OXAROL [Concomitant]
     Indication: PSORIASIS
     Route: 061
  17. NORVASC [Concomitant]
  18. ISONIAZID [Suspect]
     Indication: PROPHYLAXIS
     Route: 048
     Dates: start: 20110926
  19. AZUNOL [Concomitant]
     Indication: PSORIASIS
     Route: 061
  20. LIPITOR [Concomitant]
  21. EURAX [Concomitant]
     Indication: PSORIASIS
     Route: 061

REACTIONS (4)
  - GASTRITIS [None]
  - HEPATIC FUNCTION ABNORMAL [None]
  - TENDON INJURY [None]
  - HEPATIC STEATOSIS [None]
